FAERS Safety Report 6377660-1 (Version None)
Quarter: 2009Q3

REPORT INFORMATION
  Report Type: 
  Country: None (occurrence: None)
  Receive Date: 20090925
  Receipt Date: 20090923
  Transmission Date: 20100115
  Serious: Yes (Death)
  Sender: FDA-Public Use
  Company Number: GR-ABBOTT-09P-066-0598853-00

PATIENT
  Age: 72 Year
  Sex: Female
  Weight: 65 kg

DRUGS (17)
  1. ZEMPLAR [Suspect]
     Indication: HYPERPARATHYROIDISM SECONDARY
     Route: 042
     Dates: start: 20071023, end: 20090922
  2. TENORMIN [Concomitant]
     Indication: ATRIAL FIBRILLATION
     Dosage: 50 MG X 1/2 QD
     Route: 048
     Dates: start: 20050704, end: 20090922
  3. LASIX [Concomitant]
     Indication: RENAL FAILURE CHRONIC
     Route: 048
     Dates: start: 20050704, end: 20090922
  4. SALOSPIR [Concomitant]
     Indication: ATRIAL FIBRILLATION
     Route: 048
     Dates: start: 20050704, end: 20090922
  5. LEXOTANIL [Concomitant]
     Indication: INSOMNIA
     Route: 048
     Dates: start: 20050704, end: 20090922
  6. FORSENOL [Concomitant]
     Indication: HYPERPARATHYROIDISM SECONDARY
     Route: 048
     Dates: start: 20080201, end: 20090922
  7. THYRORMONE [Concomitant]
     Indication: ANAEMIA
     Dosage: 0.1 X 1/2 QD
     Route: 048
     Dates: start: 20050101, end: 20090922
  8. SUPERAMINE [Concomitant]
     Indication: ANAEMIA
     Route: 042
     Dates: start: 20050701, end: 20090922
  9. NEUROBION [Concomitant]
     Indication: ANAEMIA
     Route: 042
     Dates: start: 20050701, end: 20090922
  10. PASCORBIN [Concomitant]
     Indication: ANAEMIA
     Route: 042
     Dates: start: 20050704, end: 20090922
  11. VIOTINE [Concomitant]
     Indication: ANAEMIA
     Route: 042
     Dates: start: 20050704, end: 20090922
  12. VENOFER [Concomitant]
     Indication: ANAEMIA
     Route: 042
     Dates: start: 20050704, end: 20090922
  13. ARANESP [Concomitant]
     Indication: ANAEMIA
     Dosage: 100
     Route: 042
     Dates: start: 20050704, end: 20090922
  14. NORVASC [Concomitant]
     Indication: HYPERTENSION
     Route: 048
     Dates: start: 20050704, end: 20090922
  15. FILICINE [Concomitant]
     Indication: ANAEMIA
     Route: 048
     Dates: start: 20050704, end: 20090922
  16. MIMPARA [Concomitant]
     Indication: HYPERPARATHYROIDISM SECONDARY
     Route: 048
     Dates: start: 20060123, end: 20090922
  17. RENAGEL [Concomitant]
     Indication: HYPERPARATHYROIDISM SECONDARY
     Route: 048
     Dates: start: 20090101, end: 20090922

REACTIONS (1)
  - CARDIAC ARREST [None]
